FAERS Safety Report 6163401-X (Version None)
Quarter: 2009Q2

REPORT INFORMATION
  Report Type: 
  Country: None (occurrence: None)
  Receive Date: 20090422
  Receipt Date: 20090413
  Transmission Date: 20091009
  Serious: Yes (Other)
  Sender: FDA-Public Use
  Company Number: PHHY2009BR14151

PATIENT

DRUGS (5)
  1. EXELON [Suspect]
     Indication: DEMENTIA ALZHEIMER'S TYPE
     Dosage: 9MG/5CM2
     Route: 062
  2. EXELON [Suspect]
     Dosage: 18MG/10CM2
     Route: 062
  3. RIVOTRIL [Concomitant]
     Indication: AGGRESSION
     Dosage: 0.25 MG , 1 TABLET AM
     Route: 060
  4. RIVOTRIL [Concomitant]
     Indication: CRYING
  5. NIMODIPINE [Concomitant]
     Indication: DEMENTIA ALZHEIMER'S TYPE
     Dosage: 30 MG, BID

REACTIONS (10)
  - AGGRESSION [None]
  - AMNESIA [None]
  - ANOREXIA [None]
  - APPLICATION SITE WARMTH [None]
  - CONDITION AGGRAVATED [None]
  - CRYING [None]
  - DELIRIUM [None]
  - RENAL PAIN [None]
  - STUBBORNNESS [None]
  - WEIGHT DECREASED [None]
